FAERS Safety Report 11516711 (Version 6)
Quarter: 2016Q1

REPORT INFORMATION
  Report Type: Spontaneous
  Country: DE (occurrence: DE)
  Receive Date: 20150917
  Receipt Date: 20160205
  Transmission Date: 20160525
  Serious: Yes (Hospitalization, Disabling, Other)
  Sender: FDA-Public Use
  Company Number: PHHY2015DE110555

PATIENT
  Age: 58 Year
  Sex: Male
  Weight: 90.5 kg

DRUGS (9)
  1. RASILEZ [Suspect]
     Active Substance: ALISKIREN
     Indication: HYPERTENSION
     Dosage: 1 DF, QD, (300 MG ALISKIREN)
     Route: 048
     Dates: start: 20080909
  2. SIMVASTATIN HEUMANN [Concomitant]
     Indication: PRODUCT USED FOR UNKNOWN INDICATION
     Dosage: 1 DF, QD
     Route: 065
  3. VALSARTAN. [Suspect]
     Active Substance: VALSARTAN
     Indication: HYPERTENSION
     Dosage: 1 DF, BID
     Route: 065
     Dates: start: 2003
  4. ASS ELAC [Concomitant]
     Indication: PRODUCT USED FOR UNKNOWN INDICATION
     Dosage: 1 DF, QD
     Route: 065
  5. PANTOPRAZOL BIOMO [Concomitant]
     Indication: PRODUCT USED FOR UNKNOWN INDICATION
     Dosage: 1 DF, QD
     Route: 065
  6. LEVETIRACETAM BIOMO [Concomitant]
     Indication: PRODUCT USED FOR UNKNOWN INDICATION
     Dosage: 1 DF, QD
     Route: 065
  7. METOPROLOL HEUMANN [Concomitant]
     Indication: PRODUCT USED FOR UNKNOWN INDICATION
     Dosage: 1 DF, BID
     Route: 065
  8. DUOFILM [Concomitant]
     Indication: SKIN PAPILLOMA
     Dosage: UNK, TID
     Route: 065
  9. AMLODIPIN AWD [Concomitant]
     Indication: PRODUCT USED FOR UNKNOWN INDICATION
     Dosage: 1 DF, QD
     Route: 065

REACTIONS (12)
  - Seizure [Not Recovered/Not Resolved]
  - Muscle fatigue [Unknown]
  - Dyspnoea [Unknown]
  - Vascular stenosis [Unknown]
  - Off label use [Unknown]
  - Heart rate increased [Unknown]
  - Cerebrovascular accident [Recovering/Resolving]
  - Major depression [Not Recovered/Not Resolved]
  - Carotid intima-media thickness increased [Unknown]
  - Hypertensive crisis [Unknown]
  - Blood pressure increased [Unknown]
  - Arteriosclerosis [Unknown]

NARRATIVE: CASE EVENT DATE: 2012
